FAERS Safety Report 5126832-2 (Version None)
Quarter: 2006Q4

REPORT INFORMATION
  Report Type: 
  Country: None (occurrence: None)
  Receive Date: 20061013
  Receipt Date: 20060905
  Transmission Date: 20070319
  Serious: Yes (Other)
  Sender: FDA-Public Use
  Company Number: JP-ROCHE-463283

PATIENT
  Age: 56 Year
  Sex: Male

DRUGS (9)
  1. ROCALTROL [Suspect]
     Indication: HYPERPARATHYROIDISM SECONDARY
     Route: 042
     Dates: start: 20060707, end: 20060809
  2. ROCALTROL [Suspect]
     Route: 042
     Dates: start: 20060811, end: 20060904
  3. RENAGEL [Concomitant]
     Route: 048
     Dates: start: 20031024
  4. PANALDINE [Concomitant]
     Route: 048
     Dates: start: 20031024
  5. SOLANAX [Concomitant]
     Route: 048
     Dates: start: 20031024
  6. LENDORMIN [Concomitant]
     Route: 048
     Dates: start: 20031024
  7. ALLOZYM [Concomitant]
     Route: 048
     Dates: start: 20031024
  8. DORNER [Concomitant]
     Route: 048
     Dates: start: 20031128
  9. PARIET [Concomitant]
     Route: 048
     Dates: start: 20040810

REACTIONS (2)
  - GAMMA-GLUTAMYLTRANSFERASE INCREASED [None]
  - HEPATIC FUNCTION ABNORMAL [None]
